FAERS Safety Report 26137227 (Version 1)
Quarter: 2025Q4

REPORT INFORMATION
  Report Type: Spontaneous
  Country: CA (occurrence: CA)
  Receive Date: 20251209
  Receipt Date: 20251209
  Transmission Date: 20260118
  Serious: Yes (Hospitalization, Other)
  Sender: PFIZER
  Company Number: CA-PFIZER INC-202500235151

PATIENT
  Age: 19 Year
  Sex: Female
  Weight: 50 kg

DRUGS (4)
  1. IXIFI [Suspect]
     Active Substance: INFLIXIMAB-QBTX
     Indication: Colitis ulcerative
     Dosage: 500 MG, 0,2,6 WEEKS THEN EVERY 4 WEEKS.
     Route: 042
     Dates: start: 20251014
  2. IXIFI [Suspect]
     Active Substance: INFLIXIMAB-QBTX
     Dosage: 500 MG, 0,2,6 WEEKS THEN EVERY 4 WEEKS.
     Route: 042
     Dates: start: 20251029
  3. IXIFI [Suspect]
     Active Substance: INFLIXIMAB-QBTX
     Dosage: 500 MG, 0,2,6 WEEKS THEN EVERY 4 WEEKS.
     Route: 042
     Dates: start: 20251126
  4. IRON [Concomitant]
     Active Substance: IRON
     Dosage: UNK

REACTIONS (2)
  - Condition aggravated [Unknown]
  - Tachycardia [Unknown]

NARRATIVE: CASE EVENT DATE: 20250101
